FAERS Safety Report 14262258 (Version 1)
Quarter: 2017Q4

REPORT INFORMATION
  Report Type: Spontaneous
  Country: US (occurrence: US)
  Receive Date: 20171208
  Receipt Date: 20171208
  Transmission Date: 20180321
  Serious: Yes (Hospitalization)
  Sender: FDA-Public Use
  Company Number: None

PATIENT
  Sex: Male

DRUGS (13)
  1. SIROLIMUS. [Concomitant]
     Active Substance: SIROLIMUS
  2. SILDENAFIL. [Suspect]
     Active Substance: SILDENAFIL
     Indication: PULMONARY HYPERTENSION
     Route: 048
     Dates: start: 20170307
  3. CALCIUM [Concomitant]
     Active Substance: CALCIUM
  4. LIPITOR [Concomitant]
     Active Substance: ATORVASTATIN CALCIUM
  5. ASPIRIN. [Concomitant]
     Active Substance: ASPIRIN
  6. METOPROLOL. [Concomitant]
     Active Substance: METOPROLOL
  7. MAGNESIUM [Concomitant]
     Active Substance: MAGNESIUM
  8. RANITIDINE. [Concomitant]
     Active Substance: RANITIDINE
  9. SELEGILNE [Concomitant]
  10. HYDROCO [Concomitant]
  11. MYFORTIC [Concomitant]
     Active Substance: MYCOPHENOLATE SODIUM
  12. PREDNISONE. [Concomitant]
     Active Substance: PREDNISONE
  13. CAPTOPRIL. [Concomitant]
     Active Substance: CAPTOPRIL

REACTIONS (1)
  - Hospitalisation [None]
